FAERS Safety Report 9804483 (Version 8)
Quarter: 2014Q2

REPORT INFORMATION
  Report Type: Spontaneous
  Country: CA (occurrence: CA)
  Receive Date: 20140108
  Receipt Date: 20140605
  Transmission Date: 20141212
  Serious: Yes (Hospitalization, Disabling, Other)
  Sender: FDA-Public Use
  Company Number: CA-GLAXOSMITHKLINE-A1051839A

PATIENT
  Age: 44 Year
  Sex: Female
  Weight: 94 kg

DRUGS (5)
  1. TAFINLAR [Suspect]
     Indication: METASTATIC MALIGNANT MELANOMA
     Dosage: 300MG PER DAY
     Route: 048
     Dates: start: 20131024
  2. CITALOPRAM [Concomitant]
     Indication: DEPRESSION
  3. SYNTHROID [Concomitant]
     Indication: HYPOTHYROIDISM
  4. SENNA [Concomitant]
     Indication: CONSTIPATION
  5. TYLENOL WITH CODEINE [Concomitant]

REACTIONS (15)
  - Investigation [Unknown]
  - Pneumonia [Unknown]
  - Cough [Unknown]
  - Ocular hyperaemia [Recovered/Resolved]
  - Eye inflammation [Recovered/Resolved]
  - Photophobia [Recovered/Resolved]
  - Uveitis [Recovered/Resolved]
  - Eye disorder [Unknown]
  - Paranasal sinus discomfort [Unknown]
  - Eye pain [Unknown]
  - Sinusitis [Unknown]
  - No therapeutic response [Unknown]
  - Eye swelling [Unknown]
  - Asthenopia [Unknown]
  - Dry eye [Unknown]
